FAERS Safety Report 5796296-4 (Version None)
Quarter: 2008Q2

REPORT INFORMATION
  Report Type: 
  Country: None (occurrence: None)
  Receive Date: 20080627
  Receipt Date: 20080619
  Transmission Date: 20081010
  Serious: Yes (Other)
  Sender: FDA-Public Use
  Company Number: 86362

PATIENT
  Age: 4 Year
  Sex: Female
  Weight: 18.1439 kg

DRUGS (1)
  1. LICE SHAMPOO/ PERRIGO [Suspect]
     Indication: LICE INFESTATION
     Dosage: ONE APPLLICATION/ X1/TOPICAL
     Route: 061
     Dates: start: 20080618, end: 20080618

REACTIONS (4)
  - ACCIDENTAL EXPOSURE [None]
  - CHEMICAL BURNS OF EYE [None]
  - CORNEAL ABRASION [None]
  - INCORRECT ROUTE OF DRUG ADMINISTRATION [None]
